FAERS Safety Report 7419596-0 (Version None)
Quarter: 2011Q1

REPORT INFORMATION
  Report Type: 
  Country: None (occurrence: None)
  Receive Date: 20110302
  Receipt Date: 20101102
  Transmission Date: 20110831
  Serious: No
  Sender: FDA-Public Use
  Company Number: 021555

PATIENT
  Sex: Female
  Weight: 51.7 kg

DRUGS (5)
  1. AMBIEN CR [Concomitant]
  2. LIPITOR [Concomitant]
  3. PRILOSEC [Concomitant]
  4. ZOLOFT [Concomitant]
  5. CIMZIA [Suspect]
     Indication: CROHN'S DISEASE
     Dosage: (200 MG 1X/2 WEEKS SUBCUTANEOUS)
     Route: 058
     Dates: start: 20100225, end: 20100913

REACTIONS (2)
  - MUSCLE SPASMS [None]
  - PARAESTHESIA [None]
